FAERS Safety Report 25601042 (Version 1)
Quarter: 2025Q3

REPORT INFORMATION
  Report Type: Spontaneous
  Country: US (occurrence: US)
  Receive Date: 20250724
  Receipt Date: 20250724
  Transmission Date: 20251020
  Serious: No
  Sender: SANOFI AVENTIS
  Company Number: US-SA-2025SA211973

PATIENT
  Sex: Male

DRUGS (8)
  1. DUPIXENT [Suspect]
     Active Substance: DUPILUMAB
     Indication: Chronic obstructive pulmonary disease
     Dosage: 300 MG, QOW
     Route: 058
  2. ALLOPURINOL [Concomitant]
     Active Substance: ALLOPURINOL
  3. ESCITALOPRAM [Concomitant]
     Active Substance: ESCITALOPRAM OXALATE
  4. FINASTERIDE [Concomitant]
     Active Substance: FINASTERIDE
  5. FUROSEMIDE [Concomitant]
     Active Substance: FUROSEMIDE
  6. LEVOTHYROXINE [Concomitant]
     Active Substance: LEVOTHYROXINE
  7. LISINOPRIL [Concomitant]
     Active Substance: LISINOPRIL
  8. PACERONE [Concomitant]
     Active Substance: AMIODARONE HYDROCHLORIDE

REACTIONS (1)
  - Secretion discharge [Unknown]
